FAERS Safety Report 8100764-X (Version None)
Quarter: 2012Q1

REPORT INFORMATION
  Report Type: 
  Country: None (occurrence: None)
  Receive Date: 20120126
  Receipt Date: 20120105
  Transmission Date: 20120608
  Serious: Yes (Other)
  Sender: FDA-Public Use
  Company Number: TR-024964

PATIENT
  Age: 9 Year
  Sex: Female

DRUGS (2)
  1. CYCLOPHOSPHAMIDE [Suspect]
     Indication: MYELODYSPLASTIC SYNDROME
  2. BUSULFAN [Suspect]
     Indication: MYELODYSPLASTIC SYNDROME

REACTIONS (2)
  - PRIMARY ADRENAL INSUFFICIENCY [None]
  - CHRONIC GRAFT VERSUS HOST DISEASE [None]
